FAERS Safety Report 12702408 (Version 1)
Quarter: 2016Q3

REPORT INFORMATION
  Report Type: Report from Study
  Country: NL (occurrence: NL)
  Receive Date: 20160831
  Receipt Date: 20160831
  Transmission Date: 20161109
  Serious: Yes (Other)
  Sender: FDA-Public Use
  Company Number: NL-AMGEN-NLDSL2016112041

PATIENT
  Age: 68 Year
  Sex: Female

DRUGS (4)
  1. TEMAZEPAM. [Concomitant]
     Active Substance: TEMAZEPAM
     Dosage: 10 MG, UNK
     Dates: start: 20160819, end: 20160826
  2. XGEVA [Suspect]
     Active Substance: DENOSUMAB
     Indication: PRODUCT USED FOR UNKNOWN INDICATION
     Dosage: 120 MG, Q4WK
     Route: 058
     Dates: start: 20150612
  3. CALCI CHEW [Concomitant]
     Dosage: 500 MG, UNK
     Dates: start: 20150612
  4. SELOKOMB ZOC [Concomitant]
     Dosage: UNK
     Dates: start: 20100518

REACTIONS (3)
  - Papilloma excision [Unknown]
  - Breast cancer [Unknown]
  - Bile duct stenosis [Unknown]

NARRATIVE: CASE EVENT DATE: 20160814
